FAERS Safety Report 11582448 (Version 1)
Quarter: 2015Q4

REPORT INFORMATION
  Report Type: Spontaneous
  Country: US (occurrence: US)
  Receive Date: 20151001
  Receipt Date: 20151001
  Transmission Date: 20160304
  Serious: No
  Sender: FDA-Public Use
  Company Number: US-ROCHE-647970

PATIENT
  Age: 49 Year
  Sex: Female

DRUGS (3)
  1. PEGASYS [Suspect]
     Active Substance: PEGINTERFERON ALFA-2A
     Indication: HEPATITIS C
     Dosage: FORM: PRE-FILLED SYRINGE, WEEK 32 OF THERAPY
     Route: 065
  2. COPEGUS [Suspect]
     Active Substance: RIBAVIRIN
     Indication: HEPATITIS C
     Route: 065
  3. COPEGUS [Suspect]
     Active Substance: RIBAVIRIN
     Dosage: DOSE INCREASED, 1 MISSED DOSE, WEEK 32 OF THERAPY
     Route: 065

REACTIONS (18)
  - Productive cough [Not Recovered/Not Resolved]
  - Hyperhidrosis [Not Recovered/Not Resolved]
  - Anaemia [Recovered/Resolved]
  - Feeling hot [Not Recovered/Not Resolved]
  - Influenza like illness [Unknown]
  - Fatigue [Unknown]
  - Dysmenorrhoea [Unknown]
  - Depression [Unknown]
  - Pyrexia [Not Recovered/Not Resolved]
  - Fatigue [Not Recovered/Not Resolved]
  - Cough [Not Recovered/Not Resolved]
  - Headache [Not Recovered/Not Resolved]
  - Pain in extremity [Not Recovered/Not Resolved]
  - Asthenia [Unknown]
  - Polymenorrhoea [Unknown]
  - Nasopharyngitis [Not Recovered/Not Resolved]
  - Anger [Unknown]
  - Oropharyngeal pain [Unknown]

NARRATIVE: CASE EVENT DATE: 200907
